FAERS Safety Report 5065249-6 (Version None)
Quarter: 2006Q3

REPORT INFORMATION
  Report Type: 
  Country: None (occurrence: None)
  Receive Date: 20060705
  Receipt Date: 20051130
  Transmission Date: 20061208
  Serious: Yes (Hospitalization)
  Sender: FDA-Public Use
  Company Number: US-2005-023438

PATIENT
  Age: 19 Year
  Sex: Female
  Weight: 113.4 kg

DRUGS (1)
  1. YASMIN [Suspect]
     Indication: OLIGOMENORRHOEA
     Dosage: 1 TAB(S), 1X/DAY, ORAL
     Route: 048
     Dates: start: 20050801, end: 20051027

REACTIONS (3)
  - CEREBRAL THROMBOSIS [None]
  - HEADACHE [None]
  - VOMITING [None]
